FAERS Safety Report 14750250 (Version 1)
Quarter: 2018Q2

REPORT INFORMATION
  Report Type: Report from Study
  Country: EG (occurrence: EG)
  Receive Date: 20180412
  Receipt Date: 20180412
  Transmission Date: 20180711
  Serious: Yes (Other)
  Sender: FDA-Public Use
  Company Number: EG-CIPLA LTD.-2018EG15635

PATIENT

DRUGS (2)
  1. CISPLATIN. [Suspect]
     Active Substance: CISPLATIN
     Indication: BLADDER CANCER
     Dosage: 70 MG/M2, OVER 30 MINUTES, ON DAY 2, FOR 2 CYLES (28-DAY CYCLES)
     Route: 042
  2. GEMCITABINE [Suspect]
     Active Substance: GEMCITABINE\GEMCITABINE HYDROCHLORIDE
     Indication: BLADDER CANCER
     Dosage: 1000 MG/M2 OVER 30 MINUTES, ON DAYS 1, 8, AND 15 FOR 2 CYLES (28-DAY CYCLES), BEFORE AND AFTER RT
     Route: 042

REACTIONS (1)
  - Metastases to bone [Unknown]
